FAERS Safety Report 5506171-8 (Version None)
Quarter: 2007Q4

REPORT INFORMATION
  Report Type: 
  Country: None (occurrence: None)
  Receive Date: 20071105
  Receipt Date: 20071025
  Transmission Date: 20080405
  Serious: Yes (Hospitalization)
  Sender: FDA-Public Use
  Company Number: PHHO2007US07321

PATIENT
  Age: 56 Year
  Sex: Male
  Weight: 86 kg

DRUGS (15)
  1. MYCOPHENOLATE MOFETIL [Suspect]
     Indication: HEART TRANSPLANT
     Dosage: 0.25 MG, BID
     Route: 048
     Dates: start: 20070311, end: 20070503
  2. BACTRIM [Concomitant]
  3. PROTONIX [Concomitant]
  4. PRAVACHOL [Concomitant]
  5. VICODIN [Concomitant]
  6. NEORAL [Suspect]
     Indication: HEART TRANSPLANT
     Dosage: 25MG/EVENING
     Route: 048
     Dates: start: 20070311
  7. PREDNISONE [Concomitant]
  8. HYDROCHLOROTHIAZIDE [Concomitant]
  9. BUMEX [Concomitant]
  10. VALCYTE [Concomitant]
  11. MYCELEX [Concomitant]
  12. COLACE [Concomitant]
  13. OSCAL [Concomitant]
  14. ASPIRIN [Concomitant]
  15. ITRACONAZOLE [Concomitant]

REACTIONS (12)
  - ASPIRATION PLEURAL CAVITY [None]
  - BLOOD ALBUMIN DECREASED [None]
  - BLOOD CREATININE INCREASED [None]
  - DYSPNOEA [None]
  - FLUID OVERLOAD [None]
  - HYPOALBUMINAEMIA [None]
  - OEDEMA PERIPHERAL [None]
  - PERICARDIAL EFFUSION [None]
  - PLEURAL EFFUSION [None]
  - PROTEINURIA [None]
  - RENAL DISORDER [None]
  - RENAL FAILURE [None]
